FAERS Safety Report 5621150-8 (Version None)
Quarter: 2008Q1

REPORT INFORMATION
  Report Type: 
  Country: None (occurrence: None)
  Receive Date: 20080114
  Receipt Date: 20061128
  Transmission Date: 20080703
  Serious: Yes (Other)
  Sender: FDA-Public Use
  Company Number: A03200607160

PATIENT
  Age: 83 Year
  Sex: Male

DRUGS (10)
  1. PLAVIX [Suspect]
     Indication: BLOOD CHOLESTEROL INCREASED
     Dosage: 75 MG QD - ORAL
     Route: 048
     Dates: start: 20051101, end: 20061029
  2. ESOMEPRAZOLE [Concomitant]
  3. LISINOPRIL [Concomitant]
  4. GABAPENTIN [Concomitant]
  5. ISOSORBIDE MONONITRATE [Concomitant]
  6. FUROSEMIDE [Concomitant]
  7. TERAZOSIN HYDROCHLORIDE [Concomitant]
  8. SIMVASTATIN [Concomitant]
  9. METOPROLOL SUCCINATE [Concomitant]
  10. ACETYLSALICYLIC ACID SRT [Concomitant]

REACTIONS (1)
  - SMALL INTESTINAL HAEMORRHAGE [None]
